FAERS Safety Report 13736471 (Version 1)
Quarter: 2017Q3

REPORT INFORMATION
  Report Type: Spontaneous
  Country: US (occurrence: US)
  Receive Date: 20170710
  Receipt Date: 20170710
  Transmission Date: 20171127
  Serious: No
  Sender: FDA-Public Use
  Company Number: US-009507513-1706USA008887

PATIENT
  Age: 18 Year
  Sex: Female
  Weight: 65.31 kg

DRUGS (1)
  1. NEXPLANON [Suspect]
     Active Substance: ETONOGESTREL
     Indication: CONTRACEPTION
     Dosage: EVERY 3 YEARS, LEFT ARM
     Route: 059
     Dates: start: 20150112

REACTIONS (6)
  - Nausea [Unknown]
  - Hypoaesthesia [Unknown]
  - Muscular weakness [Unknown]
  - Depressed mood [Unknown]
  - Menstruation irregular [Unknown]
  - Pain in extremity [Unknown]

NARRATIVE: CASE EVENT DATE: 201701
